FAERS Safety Report 8028019-2 (Version None)
Quarter: 2011Q4

REPORT INFORMATION
  Report Type: 
  Country: None (occurrence: None)
  Receive Date: 20111130
  Receipt Date: 20110815
  Transmission Date: 20120403
  Serious: Yes (Hospitalization)
  Sender: FDA-Public Use
  Company Number: US200906006019

PATIENT
  Age: 42 Year
  Sex: Male

DRUGS (7)
  1. NOVOLIN R [Concomitant]
  2. BYETTA [Suspect]
     Dosage: 10 UG, BID, SUBCUTANEOUS
     Route: 058
     Dates: start: 20070601
  3. EXENATIDE UNK STRENGTH PEN, DISPOSABLE DEVICE (EXENATIDE PEN (UNKNOWN [Concomitant]
  4. HUMULIN /00806401/ (INSULIN HUMAN, INSULIN HUMAN INJECTION, ISOPHANE) [Concomitant]
  5. PREVACID [Concomitant]
  6. PANOXYL (BENZOYL PEROXIDE) [Concomitant]
  7. AVANDIA [Concomitant]

REACTIONS (3)
  - PANCREATITIS ACUTE [None]
  - RENAL FAILURE [None]
  - OFF LABEL USE [None]
